FAERS Safety Report 14294455 (Version 2)
Quarter: 2018Q1

REPORT INFORMATION
  Report Type: Spontaneous
  Country: FI (occurrence: FI)
  Receive Date: 20171218
  Receipt Date: 20180103
  Transmission Date: 20180509
  Serious: Yes (Hospitalization)
  Sender: FDA-Public Use
  Company Number: FI-ROCHE-2040492

PATIENT
  Age: 61 Year
  Sex: Male
  Weight: 92 kg

DRUGS (12)
  1. ZYDELIG [Suspect]
     Active Substance: IDELALISIB
     Indication: CHRONIC LYMPHOCYTIC LEUKAEMIA
     Dosage: 150 MG, BID
     Route: 065
     Dates: start: 20170607, end: 20170927
  2. MABTHERA [Suspect]
     Active Substance: RITUXIMAB
     Indication: CHRONIC LYMPHOCYTIC LEUKAEMIA
  3. ZYDELIG [Suspect]
     Active Substance: IDELALISIB
     Indication: GENE MUTATION
     Route: 065
  4. DIOVAN [Concomitant]
     Active Substance: VALSARTAN
     Indication: HEADACHE
     Dosage: 160 MG, QD
     Route: 048
  5. MABTHERA [Suspect]
     Active Substance: RITUXIMAB
     Indication: GENE MUTATION
     Route: 042
     Dates: start: 20170607, end: 20170927
  6. ORLOC [Concomitant]
     Active Substance: BISOPROLOL FUMARATE
     Dosage: 5 MG, BID
     Route: 048
  7. MABTHERA [Suspect]
     Active Substance: RITUXIMAB
     Indication: GENE MUTATION
     Route: 065
  8. COTRIM FORTE [Concomitant]
     Active Substance: SULFAMETHOXAZOLE\TRIMETHOPRIM
     Indication: INFECTION PROPHYLAXIS
     Dosage: UNK
     Route: 048
     Dates: start: 20170607, end: 20170831
  9. ALLONOL [Concomitant]
     Active Substance: ALLOPURINOL
     Indication: HYPERURICAEMIA
     Dosage: 300 MG, QD
     Route: 048
     Dates: start: 20170607, end: 20170621
  10. MABTHERA [Suspect]
     Active Substance: RITUXIMAB
     Indication: CHRONIC LYMPHOCYTIC LEUKAEMIA
  11. PRAVASTATIN. [Suspect]
     Active Substance: PRAVASTATIN
     Indication: HYPERCHOLESTEROLAEMIA
     Route: 048
     Dates: start: 20170607
  12. PENTAMIDINE [Concomitant]
     Active Substance: PENTAMIDINE
     Route: 065

REACTIONS (2)
  - Exfoliative rash [Recovered/Resolved]
  - Alanine aminotransferase increased [Unknown]
